FAERS Safety Report 7769680-7 (Version None)
Quarter: 2011Q3

REPORT INFORMATION
  Report Type: 
  Country: None (occurrence: None)
  Receive Date: 20110922
  Receipt Date: 20100827
  Transmission Date: 20111222
  Serious: No
  Sender: FDA-Public Use
  Company Number: US-ASTRAZENECA-2008UW04293

PATIENT
  Age: 554 Month
  Sex: Female
  Weight: 80.7 kg

DRUGS (14)
  1. WELLBUTRIN [Concomitant]
  2. SEROQUEL [Suspect]
     Indication: ANXIETY
     Route: 048
     Dates: start: 20011101, end: 20061101
  3. SEROQUEL [Suspect]
     Dosage: 100 MG - 1200MG
     Route: 048
     Dates: start: 20060212
  4. REMERON [Concomitant]
  5. DESYREL [Concomitant]
     Dosage: 150 - 300 MG
  6. PROZAC [Concomitant]
  7. LOXITANE [Concomitant]
  8. KLONOPIN [Concomitant]
  9. SEROQUEL [Suspect]
     Dosage: 100 MG - 1200MG
     Route: 048
     Dates: start: 20060212
  10. ABILIFY [Concomitant]
     Dates: start: 20070101
  11. SEROQUEL [Suspect]
     Indication: DEPRESSION
     Route: 048
     Dates: start: 20011101, end: 20061101
  12. ABILIFY [Concomitant]
  13. NEURONTIN [Concomitant]
  14. BENADRYL [Concomitant]

REACTIONS (6)
  - TYPE 2 DIABETES MELLITUS [None]
  - ADVERSE DRUG REACTION [None]
  - DIABETIC COMPLICATION [None]
  - BLOOD CHOLESTEROL INCREASED [None]
  - DIABETES MELLITUS [None]
  - HYPERLIPIDAEMIA [None]
